FAERS Safety Report 17654806 (Version 4)
Quarter: 2020Q2

REPORT INFORMATION
  Report Type: Spontaneous
  Country: US (occurrence: US)
  Receive Date: 20200410
  Receipt Date: 20200526
  Transmission Date: 20200713
  Serious: No
  Sender: FDA-Public Use
  Company Number: US-GLAXOSMITHKLINE-US2020AMR059018

PATIENT
  Sex: Female

DRUGS (4)
  1. ZEJULA [Suspect]
     Active Substance: NIRAPARIB
     Dosage: 100 MG, QD
     Dates: start: 20200304
  2. ZEJULA [Suspect]
     Active Substance: NIRAPARIB
     Indication: OVARIAN CANCER
     Dosage: 200 MG, QD
     Dates: start: 20181211
  3. ZEJULA [Suspect]
     Active Substance: NIRAPARIB
     Dosage: 200 MG, QD
     Dates: start: 20181215
  4. ZEJULA [Suspect]
     Active Substance: NIRAPARIB
     Dosage: 200 MG, QD

REACTIONS (16)
  - Abdominal distension [Unknown]
  - Constipation [Unknown]
  - Palpitations [Unknown]
  - Headache [Unknown]
  - Diarrhoea [Unknown]
  - Nausea [Unknown]
  - Oropharyngeal pain [Unknown]
  - Product dose omission [Unknown]
  - Dysgeusia [Unknown]
  - Feeling abnormal [Unknown]
  - Cough [Unknown]
  - Carbohydrate antigen 125 increased [Unknown]
  - Blood pressure inadequately controlled [Recovering/Resolving]
  - Dysphonia [Unknown]
  - Nasopharyngitis [Unknown]
  - Anxiety [Unknown]
